FAERS Safety Report 9859534 (Version 3)
Quarter: 2014Q1

REPORT INFORMATION
  Report Type: Spontaneous
  Country: JP (occurrence: JP)
  Receive Date: 20140131
  Receipt Date: 20140307
  Transmission Date: 20141002
  Serious: Yes (Death, Hospitalization, Other)
  Sender: FDA-Public Use
  Company Number: JP-OTSUKA-JP-2013-15734

PATIENT
  Age: 64 Year
  Sex: Male

DRUGS (9)
  1. PLETAAL [Suspect]
     Indication: PERIPHERAL ARTERIAL OCCLUSIVE DISEASE
     Dosage: 200 MG MILLIGRAM(S), DAILY DOSE
     Route: 048
     Dates: start: 20130830, end: 20131122
  2. PLAVIX [Concomitant]
     Dosage: 75 MG MILLIGRAM(S), QD
     Route: 048
     Dates: start: 20130830
  3. CADUET [Concomitant]
     Dosage: 1 DF DOSAGE FORM, DAILY DOSE
     Route: 048
     Dates: start: 20130830
  4. FEROTYM [Concomitant]
     Dosage: 50 MG MILLIGRAM(S), DAILY DOSE
     Route: 048
     Dates: start: 20130919, end: 20131119
  5. GASMOTIN [Concomitant]
     Dosage: 15 MG MILLIGRAM(S), DAILY DOSE
     Route: 048
     Dates: start: 20131214
  6. JANUVIA [Concomitant]
     Dosage: 50 MG MILLIGRAM(S), DAILY DOSE
     Route: 048
  7. LIPIDIL [Concomitant]
     Dosage: 80 MG MILLIGRAM(S), DAILY DOSE
     Route: 048
  8. MAGMITT [Concomitant]
     Dosage: 990 MG MILLIGRAM(S), DAILY DOSE, PRN
     Route: 048
  9. LAXOBERON [Concomitant]
     Dosage: 10 GTT DROP(S), DAILY DOSE, PRN
     Route: 048

REACTIONS (5)
  - Pancytopenia [Fatal]
  - Lymphoma [Fatal]
  - Histiocytosis haematophagic [Fatal]
  - Pyrexia [Unknown]
  - Epistaxis [Recovered/Resolved]
